FAERS Safety Report 4882121-2 (Version None)
Quarter: 2006Q1

REPORT INFORMATION
  Report Type: 
  Country: None (occurrence: None)
  Receive Date: 20060117
  Receipt Date: 20050829
  Transmission Date: 20060701
  Serious: Yes (Death, Hospitalization, Other)
  Sender: FDA-Public Use
  Company Number: US-MERCK-0508USA04901

PATIENT
  Age: 53 Year
  Sex: Female

DRUGS (2)
  1. VIOXX [Suspect]
     Indication: ARTHRITIS
     Route: 048
  2. VIOXX [Suspect]
     Indication: INJURY
     Route: 048

REACTIONS (21)
  - AORTIC DISSECTION [None]
  - AORTIC VALVE DISEASE [None]
  - ARRHYTHMIA [None]
  - ARTERIOSCLEROSIS [None]
  - ASTHMA [None]
  - BACK PAIN [None]
  - CARDIAC ARREST [None]
  - CARDIAC FAILURE CONGESTIVE [None]
  - CELLULITIS [None]
  - CEREBROVASCULAR ACCIDENT [None]
  - CHEST PAIN [None]
  - HEPATIC STEATOSIS [None]
  - HYPOTHYROIDISM [None]
  - MEDIASTINAL FIBROSIS [None]
  - NEURALGIA [None]
  - PAIN IN EXTREMITY [None]
  - PNEUMONIA [None]
  - PNEUMONIA ASPIRATION [None]
  - RENAL TUBULAR NECROSIS [None]
  - THROMBOSIS [None]
  - VENTRICULAR HYPERTROPHY [None]
